FAERS Safety Report 5668387-X (Version None)
Quarter: 2008Q1

REPORT INFORMATION
  Report Type: 
  Country: None (occurrence: None)
  Receive Date: 20080315
  Receipt Date: 20080226
  Transmission Date: 20080703
  Serious: No
  Sender: FDA-Public Use
  Company Number: US-ABBOTT-08P-163-0439770-00

PATIENT
  Age: 27 Year
  Sex: Male
  Weight: 89.892 kg

DRUGS (3)
  1. HUMIRA [Suspect]
     Indication: ANKYLOSING SPONDYLITIS
     Route: 058
     Dates: start: 20070901, end: 20080217
  2. INDOMETHACIN [Concomitant]
     Indication: ARTHRITIS
  3. CYCLOBENZAPRINE HCL [Concomitant]
     Indication: MUSCULOSKELETAL STIFFNESS

REACTIONS (1)
  - DRUG INEFFECTIVE [None]
